FAERS Safety Report 16208578 (Version 1)
Quarter: 2019Q2

REPORT INFORMATION
  Report Type: Spontaneous
  Country: GR (occurrence: GR)
  Receive Date: 20190417
  Receipt Date: 20190417
  Transmission Date: 20190711
  Serious: Yes (Other)
  Sender: FDA-Public Use
  Company Number: GR-PFIZER INC-2019154675

PATIENT
  Age: 60 Year
  Sex: Male
  Weight: 65 kg

DRUGS (4)
  1. ZOLOFT [Suspect]
     Active Substance: SERTRALINE HYDROCHLORIDE
     Indication: BIPOLAR DISORDER
     Dosage: 200 MG, ONCE DAILY (1X/24HR)
     Route: 048
     Dates: start: 201010
  2. ZYPREXA [Concomitant]
     Active Substance: OLANZAPINE
     Indication: BIPOLAR DISORDER
     Dosage: 10 MG, ONCE DAILY (1X/24HR)
     Route: 048
     Dates: start: 201010
  3. MILITHIN [Concomitant]
     Indication: BIPOLAR DISORDER
     Dosage: 900 MG, ONCE DAILY (1X/24HR)
     Route: 048
     Dates: start: 201209
  4. LAMICTAL [Concomitant]
     Active Substance: LAMOTRIGINE
     Indication: BIPOLAR DISORDER
     Dosage: 400 MG, ONCE DAILY (1/24HR)
     Route: 048
     Dates: start: 200909

REACTIONS (1)
  - Prothrombin time prolonged [Unknown]

NARRATIVE: CASE EVENT DATE: 201304
